FAERS Safety Report 8233727-4 (Version None)
Quarter: 2012Q1

REPORT INFORMATION
  Report Type: 
  Country: None (occurrence: None)
  Receive Date: 20120326
  Receipt Date: 20120320
  Transmission Date: 20120608
  Serious: Yes (Other)
  Sender: FDA-Public Use
  Company Number: PHHY2012FI024811

PATIENT
  Sex: Male

DRUGS (4)
  1. ENANTONE - DEPOT [Concomitant]
     Dosage: 11.25 MG EVERY THREE MONTHS
  2. DEXAMETASON [Concomitant]
     Dosage: 2 DF, QD (1.5 MG)
  3. ZOMETA [Suspect]
     Dosage: UNKNOWN DOSE ONCE IN FOUR WEEKS A TOTAL OF SIX TIMES
  4. ZOMETA [Suspect]
     Dosage: UNKNOWN DOSE ONCE IN FOUR WEEKS A TOTAL OF SIX TIMES
     Dates: start: 20120118, end: 20120118

REACTIONS (2)
  - OSTEONECROSIS OF JAW [None]
  - PAIN IN JAW [None]
